FAERS Safety Report 10622580 (Version 1)
Quarter: 2014Q4

REPORT INFORMATION
  Report Type: Spontaneous
  Country: JP (occurrence: JP)
  Receive Date: 20141203
  Receipt Date: 20141203
  Transmission Date: 20150529
  Serious: Yes (Other)
  Sender: FDA-Public Use
  Company Number: JP-PFIZER INC-2014329696

PATIENT
  Sex: Female

DRUGS (2)
  1. NOVASTAN [Suspect]
     Active Substance: ARGATROBAN
     Indication: CEREBRAL THROMBOSIS
     Dosage: 60MG, (30 MG, 2X/DAY)
     Route: 041
  2. NOVASTAN [Suspect]
     Active Substance: ARGATROBAN
     Dosage: 20 MG (10 MG, 2X/DAY IN THE MORNING AND EVENING)
     Route: 041

REACTIONS (3)
  - Movement disorder [Unknown]
  - Paralysis [Unknown]
  - Cerebrovascular stenosis [Unknown]
